FAERS Safety Report 14948685 (Version 22)
Quarter: 2019Q1

REPORT INFORMATION
  Report Type: Spontaneous
  Country: US (occurrence: US)
  Receive Date: 20180529
  Receipt Date: 20190312
  Transmission Date: 20190417
  Serious: Yes (Other)
  Sender: FDA-Public Use
  Company Number: US-SUNOVION-2018SUN002083

PATIENT
  Age: 64 Year
  Sex: Female
  Weight: 59.86 kg

DRUGS (26)
  1. APTIOM [Suspect]
     Active Substance: ESLICARBAZEPINE ACETATE
     Dosage: 800 MG, QD
     Route: 048
  2. PHENOBARBITAL. [Suspect]
     Active Substance: PHENOBARBITAL
     Dosage: UNK
  3. APTIOM [Suspect]
     Active Substance: ESLICARBAZEPINE ACETATE
     Dosage: 400 MG, QD
     Route: 048
  4. ZONISAMIDE UNKNOWN FORMULATION [Suspect]
     Active Substance: ZONISAMIDE
     Dosage: 100 MG, BID
  5. PHENOBARBITAL. [Suspect]
     Active Substance: PHENOBARBITAL
     Dosage: 4 DF, UNK
  6. APTIOM [Suspect]
     Active Substance: ESLICARBAZEPINE ACETATE
     Dosage: 400 MG, HS
     Route: 048
  7. APTIOM [Suspect]
     Active Substance: ESLICARBAZEPINE ACETATE
     Dosage: 600 MG, EVERY EVENING UNK
     Route: 048
  8. APTIOM [Suspect]
     Active Substance: ESLICARBAZEPINE ACETATE
     Indication: EPILEPSY
     Dosage: 300 MG
     Route: 048
  9. APTIOM [Suspect]
     Active Substance: ESLICARBAZEPINE ACETATE
     Dosage: 600 MG, QD
     Route: 048
     Dates: start: 2016
  10. APTIOM [Suspect]
     Active Substance: ESLICARBAZEPINE ACETATE
     Dosage: 200 MG, UNK
     Route: 048
  11. COUMADIN [Concomitant]
     Active Substance: WARFARIN SODIUM
     Indication: CARDIAC OPERATION
     Dosage: 6 MG, ON MONDAY
     Route: 048
  12. PHENOBARBITAL. [Suspect]
     Active Substance: PHENOBARBITAL
     Dosage: 32.4 MG TID
     Route: 048
  13. APTIOM [Suspect]
     Active Substance: ESLICARBAZEPINE ACETATE
     Dosage: 600 MG, UNK
     Route: 048
  14. ZONISAMIDE TABLET UNKNOWN STRENGTH [Suspect]
     Active Substance: ZONISAMIDE
     Dosage: 100 MG, BID
  15. PHENOBARBITAL. [Suspect]
     Active Substance: PHENOBARBITAL
     Indication: EPILEPSY
     Dosage: 16.2 MG, QD
  16. PHENOBARBITAL. [Suspect]
     Active Substance: PHENOBARBITAL
     Dosage: 64.8 MG, QD
  17. APTIOM [Suspect]
     Active Substance: ESLICARBAZEPINE ACETATE
     Dosage: 400 MG, QD
     Route: 048
  18. APTIOM [Suspect]
     Active Substance: ESLICARBAZEPINE ACETATE
     Dosage: 600 MG, UNK
     Route: 048
  19. PHENOBARBITAL. [Suspect]
     Active Substance: PHENOBARBITAL
     Indication: SEIZURE
     Dosage: 32.4 MG, THREE TABLETS DAILY (2 MORNING, 1 EVENING)
     Route: 048
  20. PHENOBARBITAL. [Suspect]
     Active Substance: PHENOBARBITAL
     Dosage: 3 UNK, UNK
  21. COUMADIN [Concomitant]
     Active Substance: WARFARIN SODIUM
     Indication: HEART VALVE REPLACEMENT
     Dosage: 4 MG, REMAINING DAYS OF THE WEEK
     Route: 048
  22. COUMADIN [Concomitant]
     Active Substance: WARFARIN SODIUM
     Dosage: UNK
     Route: 048
  23. APTIOM [Suspect]
     Active Substance: ESLICARBAZEPINE ACETATE
     Indication: SEIZURE
     Dosage: 2000 MG
     Route: 048
     Dates: start: 2016
  24. APTIOM [Suspect]
     Active Substance: ESLICARBAZEPINE ACETATE
     Dosage: UNK
  25. PHENOBARBITAL. [Suspect]
     Active Substance: PHENOBARBITAL
     Dosage: 64.8 MG, EVERY MORNING
  26. BRIVIACT [Concomitant]
     Active Substance: BRIVARACETAM
     Indication: SEIZURE
     Dosage: 800 MG, HS
     Route: 048

REACTIONS (53)
  - Cardiac failure congestive [Unknown]
  - International normalised ratio decreased [Unknown]
  - Headache [Not Recovered/Not Resolved]
  - White blood cell count increased [Unknown]
  - Haemorrhage [Unknown]
  - Choking sensation [Not Recovered/Not Resolved]
  - Cough [Not Recovered/Not Resolved]
  - Malaise [Unknown]
  - Labelled drug-drug interaction medication error [Unknown]
  - Chromaturia [Recovered/Resolved]
  - Drug ineffective [Unknown]
  - Pharyngeal oedema [Not Recovered/Not Resolved]
  - Oxygen saturation decreased [Unknown]
  - Rash [Not Recovered/Not Resolved]
  - Fall [Recovered/Resolved]
  - Dehydration [Unknown]
  - Nasal discomfort [Unknown]
  - Angular cheilitis [Unknown]
  - Skin wrinkling [Not Recovered/Not Resolved]
  - Syncope [Unknown]
  - Oral pain [Unknown]
  - Infection [Not Recovered/Not Resolved]
  - Hypertension [Unknown]
  - Diarrhoea [Not Recovered/Not Resolved]
  - Dyspnoea [Unknown]
  - Lacrimation increased [Not Recovered/Not Resolved]
  - Dysphagia [Not Recovered/Not Resolved]
  - Feeling abnormal [Unknown]
  - Contusion [Unknown]
  - Stomatitis [Unknown]
  - Overdose [Unknown]
  - International normalised ratio increased [Unknown]
  - Coagulopathy [Unknown]
  - Hypercoagulation [Unknown]
  - Pruritus [Unknown]
  - Urticaria [Not Recovered/Not Resolved]
  - Cerebral haemorrhage [Unknown]
  - Loss of consciousness [Unknown]
  - Abdominal distension [Not Recovered/Not Resolved]
  - Head injury [Unknown]
  - Middle insomnia [Not Recovered/Not Resolved]
  - Dry throat [Not Recovered/Not Resolved]
  - Seizure [Not Recovered/Not Resolved]
  - Joint swelling [Unknown]
  - Petechiae [Unknown]
  - Oxygen saturation increased [Not Recovered/Not Resolved]
  - Polydipsia [Unknown]
  - Peripheral swelling [Not Recovered/Not Resolved]
  - Hypersensitivity [Recovered/Resolved]
  - Blood pressure decreased [Unknown]
  - Weight increased [Unknown]
  - Rash maculo-papular [Recovered/Resolved]
  - Sneezing [Not Recovered/Not Resolved]

NARRATIVE: CASE EVENT DATE: 20180822
